FAERS Safety Report 7771714-0 (Version None)
Quarter: 2011Q3

REPORT INFORMATION
  Report Type: 
  Country: None (occurrence: None)
  Receive Date: 20110922
  Receipt Date: 20101110
  Transmission Date: 20111222
  Serious: No
  Sender: FDA-Public Use
  Company Number: US-ASTRAZENECA-2010SE53598

PATIENT
  Sex: Female

DRUGS (4)
  1. RISPERDAL [Concomitant]
  2. LITHIUM [Concomitant]
  3. TRAZODONE HCL [Concomitant]
  4. SEROQUEL XR [Suspect]
     Route: 048
     Dates: start: 20100901

REACTIONS (4)
  - NERVOUSNESS [None]
  - NIGHTMARE [None]
  - FEELING JITTERY [None]
  - MIDDLE INSOMNIA [None]
